FAERS Safety Report 5901810-1 (Version None)
Quarter: 2008Q3

REPORT INFORMATION
  Report Type: 
  Country: None (occurrence: None)
  Receive Date: 20080929
  Receipt Date: 20080926
  Transmission Date: 20090109
  Serious: Yes (Life-Threatening, Hospitalization, Other)
  Sender: FDA-Public Use
  Company Number: JP-ASTRAZENECA-2008AP07144

PATIENT
  Age: 982 Month
  Sex: Female
  Weight: 57 kg

DRUGS (10)
  1. PULMICORT TURBUHALER 100 MICRO G [Suspect]
     Indication: ASTHMA
     Route: 055
     Dates: start: 20070801
  2. RENIVEZE [Suspect]
     Indication: HYPERTENSION
     Route: 048
     Dates: start: 20080416, end: 20080815
  3. ASPIRIN [Suspect]
     Indication: CEREBRAL INFARCTION
     Dosage: DOSE UNKNOWN
     Route: 048
     Dates: start: 20031201, end: 20080815
  4. URSO 250 [Concomitant]
     Indication: CHOLELITHIASIS
     Route: 048
     Dates: start: 19890101, end: 20080815
  5. MOHRUS TAPE [Concomitant]
     Dosage: DOSE UNKNOWN
     Route: 062
     Dates: start: 19940101, end: 20080815
  6. CLARITIN [Concomitant]
     Indication: RHINITIS ALLERGIC
     Route: 048
     Dates: start: 20070801, end: 20080815
  7. SINGULAIR [Concomitant]
     Route: 048
     Dates: start: 20070801, end: 20080815
  8. INTAL [Concomitant]
     Dosage: DOSE UNKNOWN
     Route: 045
     Dates: start: 20070801
  9. MUCODYNE [Concomitant]
     Route: 048
  10. UNIPHYL LA [Concomitant]
     Route: 048
     Dates: end: 20080815

REACTIONS (2)
  - LEUKOCYTOCLASTIC VASCULITIS [None]
  - NEPHRITIS INTERSTITIAL [None]
